FAERS Safety Report 19263742 (Version 1)
Quarter: 2021Q2

REPORT INFORMATION
  Report Type: Spontaneous
  Country: US (occurrence: US)
  Receive Date: 20210514
  Receipt Date: 20210514
  Transmission Date: 20210717
  Serious: Yes (Death)
  Sender: FDA-Public Use
  Company Number: None

PATIENT
  Age: 53 Year
  Sex: Female

DRUGS (1)
  1. MYCOPHENOLIC DR TAB 360MG [Suspect]
     Active Substance: MYCOPHENOLIC ACID
     Dosage: ?          OTHER DOSE:2 TABLETS;?
     Route: 048
     Dates: start: 202101

REACTIONS (1)
  - Death [None]

NARRATIVE: CASE EVENT DATE: 20210514
